FAERS Safety Report 6697596-6 (Version None)
Quarter: 2010Q2

REPORT INFORMATION
  Report Type: 
  Country: None (occurrence: None)
  Receive Date: 20100426
  Receipt Date: 20100416
  Transmission Date: 20101027
  Serious: Yes (Other)
  Sender: FDA-Public Use
  Company Number: FR-AMGEN-QUU399071

PATIENT
  Sex: Male

DRUGS (10)
  1. NPLATE [Suspect]
     Indication: IDIOPATHIC THROMBOCYTOPENIC PURPURA
     Route: 058
     Dates: start: 20100122
  2. TARDYFERON [Concomitant]
  3. LORAZEPAM [Concomitant]
  4. GARDENAL [Concomitant]
  5. URBANYL [Concomitant]
  6. COZAAR [Concomitant]
  7. OMEPRAZOLE [Concomitant]
     Dates: start: 20070501
  8. MIANSERIN [Concomitant]
  9. DIHYDROERGOCRISTINE [Concomitant]
  10. YOHIMBE [Concomitant]

REACTIONS (3)
  - BONE MARROW RETICULIN FIBROSIS [None]
  - MYELOPROLIFERATIVE DISORDER [None]
  - PLATELET COUNT DECREASED [None]
